FAERS Safety Report 14562972 (Version 1)
Quarter: 2018Q1

REPORT INFORMATION
  Report Type: Spontaneous
  Country: US (occurrence: US)
  Receive Date: 20180221
  Receipt Date: 20180221
  Transmission Date: 20180509
  Serious: No
  Sender: FDA-Public Use
  Company Number: None

PATIENT
  Age: 73 Year
  Sex: Female
  Weight: 51.3 kg

DRUGS (1)
  1. PACLITAXEL 6 MG/ML 50 ML VIAL HOSPITA [Suspect]
     Active Substance: PACLITAXEL
     Indication: BREAST CANCER
     Route: 042
     Dates: start: 20180215

REACTIONS (2)
  - Flushing [None]
  - Feeling hot [None]

NARRATIVE: CASE EVENT DATE: 20180215
